FAERS Safety Report 18013084 (Version 1)
Quarter: 2020Q3

REPORT INFORMATION
  Report Type: Spontaneous
  Country: US (occurrence: US)
  Receive Date: 20200713
  Receipt Date: 20200713
  Transmission Date: 20201103
  Serious: No
  Sender: FDA-Public Use
  Company Number: US-BIOGEN-2020BI00850072

PATIENT
  Age: 58 Year
  Sex: Female

DRUGS (1)
  1. TECFIDERA [Suspect]
     Active Substance: DIMETHYL FUMARATE
     Indication: MULTIPLE SCLEROSIS
     Dosage: MAINTENANCE DOSE
     Route: 048
     Dates: start: 20200210

REACTIONS (5)
  - Gastrooesophageal reflux disease [Unknown]
  - Haematemesis [Recovered/Resolved]
  - Gastric disorder [Unknown]
  - Rash [Unknown]
  - Flushing [Unknown]

NARRATIVE: CASE EVENT DATE: 20200210
